FAERS Safety Report 5924894-3 (Version None)
Quarter: 2008Q4

REPORT INFORMATION
  Report Type: 
  Country: None (occurrence: None)
  Receive Date: 20081017
  Receipt Date: 20081017
  Transmission Date: 20090506
  Serious: Yes (Life-Threatening, Other)
  Sender: FDA-Public Use
  Company Number: None

PATIENT
  Age: 53 Year
  Sex: Female
  Weight: 129.7287 kg

DRUGS (1)
  1. SIMVASTATIN [Suspect]
     Indication: BLOOD CHOLESTEROL DECREASED
     Dosage: 10MG @ BEDTIME PO
     Route: 048
     Dates: start: 20080801, end: 20081016

REACTIONS (3)
  - HAEMORRHAGE [None]
  - POSTURE ABNORMAL [None]
  - SOMNOLENCE [None]
